FAERS Safety Report 21529409 (Version 2)
Quarter: 2023Q1

REPORT INFORMATION
  Report Type: Spontaneous
  Country: BE (occurrence: BE)
  Receive Date: 20221031
  Receipt Date: 20230222
  Transmission Date: 20230418
  Serious: Yes (Hospitalization)
  Sender: FDA-Public Use
  Company Number: BE-NOVARTISPH-NVSC2022BE242441

PATIENT
  Age: 61 Year
  Sex: Female
  Weight: 62.5 kg

DRUGS (13)
  1. LETROZOLE [Suspect]
     Active Substance: LETROZOLE
     Indication: Breast cancer
     Dosage: 2.5 MG, QD
     Route: 065
     Dates: start: 20180309, end: 20190107
  2. ANASTROZOLE [Suspect]
     Active Substance: ANASTROZOLE
     Indication: Breast cancer
     Dosage: 1 MG, QD
     Route: 048
     Dates: start: 20190107, end: 20200221
  3. ANASTROZOLE [Suspect]
     Active Substance: ANASTROZOLE
     Dosage: UNK
     Route: 065
     Dates: start: 20200221
  4. ALENDRONATE [Concomitant]
     Active Substance: ALENDRONATE SODIUM
     Indication: Prophylaxis
     Dosage: UNK
     Route: 065
     Dates: start: 20190701
  5. CALCIUM CARBONATE\CHOLECALCIFEROL [Concomitant]
     Active Substance: CALCIUM CARBONATE\CHOLECALCIFEROL
     Indication: Prophylaxis
     Dosage: UNK
     Route: 065
     Dates: start: 20180423
  6. MAGNESIUM [Concomitant]
     Active Substance: MAGNESIUM
     Indication: Product used for unknown indication
     Dosage: UNK
     Route: 065
     Dates: start: 20180601
  7. DONACOM [Concomitant]
     Indication: Arthralgia
     Dosage: UNK
     Route: 065
     Dates: start: 20181105
  8. METARELAX [Concomitant]
     Indication: Muscle spasms
     Dosage: UNK
     Route: 065
     Dates: start: 20190219
  9. BETAHISTINE [Concomitant]
     Active Substance: BETAHISTINE
     Indication: Balance disorder
     Dosage: UNK
     Route: 065
     Dates: start: 20190426
  10. CURCUMIN [Concomitant]
     Active Substance: CURCUMIN
     Indication: Arthralgia
     Dosage: UNK
     Route: 065
     Dates: start: 20200316
  11. VOLTAREN [Concomitant]
     Active Substance: DICLOFENAC SODIUM
     Indication: Meniscus injury
     Dosage: UNK
     Route: 065
     Dates: start: 20210902
  12. ACETAMINOPHEN [Concomitant]
     Active Substance: ACETAMINOPHEN
     Indication: Meniscus injury
     Dosage: UNK
     Route: 065
     Dates: start: 20210902
  13. AZARGA [Concomitant]
     Active Substance: BRINZOLAMIDE\TIMOLOL MALEATE
     Indication: Glaucoma
     Dosage: UNK
     Route: 065
     Dates: start: 20210601

REACTIONS (1)
  - Diverticulitis [Recovered/Resolved]

NARRATIVE: CASE EVENT DATE: 20220519
